FAERS Safety Report 15569314 (Version 1)
Quarter: 2018Q4

REPORT INFORMATION
  Report Type: Spontaneous
  Country: BR (occurrence: BR)
  Receive Date: 20181031
  Receipt Date: 20181031
  Transmission Date: 20190205
  Serious: Yes (Other)
  Sender: FDA-Public Use
  Company Number: BR-ABBVIE-18P-020-2538084-00

PATIENT
  Sex: Male
  Weight: 55 kg

DRUGS (2)
  1. DEPAKENE [Suspect]
     Active Substance: VALPROIC ACID
     Indication: PRODUCT USED FOR UNKNOWN INDICATION
     Dosage: FORM STRENGTH: 300MG. NO FURTHER INFORMATION ABOUT TREATMENT AVAILABLE.
     Route: 065
  2. DEPAKENE [Suspect]
     Active Substance: VALPROIC ACID
     Dosage: SWITCHED TO DEPAKENE 500MG ON USPECIFIED DATE AND NO LONGER PRESENTED THE EVENT
     Route: 048

REACTIONS (1)
  - Seizure [Recovered/Resolved]
